FAERS Safety Report 6924467-X (Version None)
Quarter: 2010Q3

REPORT INFORMATION
  Report Type: 
  Country: None (occurrence: None)
  Receive Date: 20100811
  Receipt Date: 20100726
  Transmission Date: 20110219
  Serious: Yes (Hospitalization)
  Sender: FDA-Public Use
  Company Number: CRC-10-114

PATIENT
  Age: 60 Year
  Sex: Female
  Weight: 110.6777 kg

DRUGS (1)
  1. METFORMIN HCL [Suspect]
     Indication: DIABETES MELLITUS
     Dosage: ONE TABLET TWICE DAILY
     Dates: start: 20100101, end: 20100701

REACTIONS (3)
  - NAUSEA [None]
  - NEPHROLITHIASIS [None]
  - PRODUCT QUALITY ISSUE [None]
